FAERS Safety Report 11238404 (Version 1)
Quarter: 2015Q3

REPORT INFORMATION
  Report Type: Spontaneous
  Country: GB (occurrence: GB)
  Receive Date: 20150705
  Receipt Date: 20150705
  Transmission Date: 20151125
  Serious: Yes (Other)
  Sender: FDA-Public Use
  Company Number: GB-DEXPHARM-20150547

PATIENT
  Age: 57 Year
  Sex: Male
  Weight: 108 kg

DRUGS (6)
  1. AMOXICILLIN. [Interacting]
     Active Substance: AMOXICILLIN
     Dates: start: 20150528, end: 20150604
  2. RAMIPRIL. [Concomitant]
     Active Substance: RAMIPRIL
     Dates: start: 20141230, end: 20150331
  3. ATORVASTATIN [Concomitant]
     Active Substance: ATORVASTATIN
     Dates: start: 20141230
  4. FELODIPINE. [Concomitant]
     Active Substance: FELODIPINE
     Dates: start: 20141230
  5. OMEPRAZOLE. [Suspect]
     Active Substance: OMEPRAZOLE
     Indication: DYSPEPSIA
     Dates: start: 20150609
  6. PREDNISOLONE. [Concomitant]
     Active Substance: PREDNISOLONE
     Dates: start: 20150528, end: 20150529

REACTIONS (3)
  - Renal impairment [Unknown]
  - Tubulointerstitial nephritis [Unknown]
  - Drug interaction [Unknown]

NARRATIVE: CASE EVENT DATE: 20150609
